FAERS Safety Report 25151188 (Version 1)
Quarter: 2025Q2

REPORT INFORMATION
  Report Type: Spontaneous
  Country: PL (occurrence: PL)
  Receive Date: 20250402
  Receipt Date: 20250402
  Transmission Date: 20250717
  Serious: Yes (Other)
  Sender: Vantive US Healthcare
  Company Number: PL-VANTIVE-2025VAN001249

PATIENT
  Sex: Male

DRUGS (1)
  1. ANHYDROUS DEXTROSE\CALCIUM CHLORIDE\MAGNESIUM CHLORIDE\SODIUM BICARBON [Suspect]
     Active Substance: ANHYDROUS DEXTROSE\CALCIUM CHLORIDE\MAGNESIUM CHLORIDE\SODIUM BICARBONATE\SODIUM CHLORIDE\SODIUM LAC
     Route: 033

REACTIONS (4)
  - Pneumoperitoneum [Unknown]
  - Product container issue [Unknown]
  - Discomfort [Unknown]
  - Procedural pain [Unknown]

NARRATIVE: CASE EVENT DATE: 20250310
